FAERS Safety Report 21503651 (Version 1)
Quarter: 2022Q4

REPORT INFORMATION
  Report Type: Other
  Country: US (occurrence: None)
  Receive Date: 20221025
  Receipt Date: 20221025
  Transmission Date: 20230112
  Serious: Yes (Other)
  Sender: FDA-Public Use
  Company Number: US-ROCHE-3191862

PATIENT
  Sex: Male

DRUGS (2)
  1. VALCYTE [Suspect]
     Active Substance: VALGANCICLOVIR HYDROCHLORIDE
     Indication: Lung transplant
     Dosage: VIA FEED TUBE, 50MG/ML ORAL SOLUTION
     Route: 048
  2. VALCYTE [Suspect]
     Active Substance: VALGANCICLOVIR HYDROCHLORIDE
     Dosage: 9 ML(450MG) VIA FEED TUBE QD
     Route: 048

REACTIONS (3)
  - Off label use [Unknown]
  - Product use complaint [Unknown]
  - Neoplasm malignant [Unknown]
